FAERS Safety Report 6610634-1 (Version None)
Quarter: 2010Q1

REPORT INFORMATION
  Report Type: 
  Country: None (occurrence: None)
  Receive Date: 20100302
  Receipt Date: 20100224
  Transmission Date: 20100710
  Serious: Yes (Death)
  Sender: FDA-Public Use
  Company Number: A0783851A

PATIENT
  Sex: Female

DRUGS (12)
  1. ADVAIR DISKUS 100/50 [Suspect]
     Indication: DRUG USE FOR UNKNOWN INDICATION
     Route: 055
  2. SEREVENT [Suspect]
     Indication: DRUG USE FOR UNKNOWN INDICATION
     Route: 055
  3. AVALIDE [Concomitant]
     Route: 048
  4. PAXIL [Concomitant]
     Dosage: 20MG PER DAY
     Route: 048
  5. AVANDAMET [Concomitant]
     Route: 048
  6. LIPITOR [Concomitant]
     Dosage: 20MG PER DAY
     Route: 048
  7. ENABLEX [Concomitant]
     Dosage: 7.5MG PER DAY
     Route: 048
  8. METOPROLOL TARTRATE [Concomitant]
     Dosage: 25MG TWICE PER DAY
     Route: 048
  9. CLONIDINE [Concomitant]
     Dosage: 8.2MG PER DAY
     Route: 048
  10. AMARYL [Concomitant]
     Dosage: 2MG PER DAY
     Route: 048
  11. LEVOTHYROXINE SODIUM [Concomitant]
     Dosage: 100MG PER DAY
     Route: 048
  12. ALBUTEROL [Concomitant]
     Route: 055

REACTIONS (2)
  - CARDIAC ARREST [None]
  - RESPIRATORY FAILURE [None]
